FAERS Safety Report 23897893 (Version 1)
Quarter: 2024Q2

REPORT INFORMATION
  Report Type: Spontaneous
  Country: JP (occurrence: JP)
  Receive Date: 20240524
  Receipt Date: 20240524
  Transmission Date: 20240716
  Serious: Yes (Hospitalization)
  Sender: FDA-Public Use
  Company Number: JP-ELI_LILLY_AND_COMPANY-JP202403009020

PATIENT
  Age: 59 Year
  Sex: Female
  Weight: 54 kg

DRUGS (2)
  1. TALTZ [Suspect]
     Active Substance: IXEKIZUMAB
     Indication: Spondylitis
     Dosage: 160 MG, SINGLE
     Route: 058
     Dates: start: 20210519
  2. TALTZ [Suspect]
     Active Substance: IXEKIZUMAB
     Dosage: 80 MG, 2/M
     Route: 058
     Dates: end: 20210630

REACTIONS (6)
  - Aphthous ulcer [Recovered/Resolved]
  - Taste disorder [Recovered/Resolved]
  - Pyrexia [Recovered/Resolved]
  - Stomatitis [Unknown]
  - Herpes simplex test positive [Unknown]
  - Oral candidiasis [Recovered/Resolved]

NARRATIVE: CASE EVENT DATE: 20210625
